FAERS Safety Report 4616980-5 (Version None)
Quarter: 2005Q1

REPORT INFORMATION
  Report Type: 
  Country: None (occurrence: None)
  Receive Date: 20050318
  Receipt Date: 20050309
  Transmission Date: 20050727
  Serious: Yes (Death)
  Sender: FDA-Public Use
  Company Number: SEWYE495111MAR05

PATIENT
  Age: 55 Year
  Sex: Male

DRUGS (5)
  1. EFFEXOR [Suspect]
     Indication: DEPRESSION
     Dosage: SEE IMAGE
     Route: 048
     Dates: start: 20030101, end: 20030101
  2. EFFEXOR [Suspect]
     Indication: DEPRESSION
     Dosage: SEE IMAGE
     Route: 048
     Dates: start: 20030101, end: 20030101
  3. EFFEXOR [Suspect]
     Indication: DEPRESSION
     Dosage: SEE IMAGE
     Route: 048
     Dates: start: 20030101, end: 20030101
  4. METFORMIN HCL [Concomitant]
  5. UNSPECIFIED ANTIFUNGAL (UNSPECIFIED ANTIFUNGAL) [Concomitant]

REACTIONS (3)
  - COMPLETED SUICIDE [None]
  - DRUG LEVEL INCREASED [None]
  - SEROTONIN SYNDROME [None]
